FAERS Safety Report 13461072 (Version 2)
Quarter: 2017Q2

REPORT INFORMATION
  Report Type: Report from Study
  Country: CO (occurrence: CO)
  Receive Date: 20170420
  Receipt Date: 20170421
  Transmission Date: 20170830
  Serious: Yes (Life-Threatening)
  Sender: FDA-Public Use
  Company Number: US-ASTRAZENECA-2014SE24672

PATIENT
  Age: 53 Year
  Sex: Female
  Weight: 46 kg

DRUGS (11)
  1. LOSARTAN. [Concomitant]
     Active Substance: LOSARTAN
     Indication: DRUG THERAPY
     Route: 048
     Dates: start: 2010
  2. METOPROLOL. [Concomitant]
     Active Substance: METOPROLOL
     Indication: DRUG THERAPY
     Route: 048
     Dates: start: 2012
  3. CLOPIDOGREL BISULFATE. [Concomitant]
     Active Substance: CLOPIDOGREL BISULFATE
     Indication: ANTIPLATELET THERAPY
     Dosage: 75.0MG UNKNOWN
     Route: 048
     Dates: start: 20140208
  4. LEVOTIROXINA [Concomitant]
     Active Substance: LEVOTHYROXINE SODIUM
     Indication: HYPOTHYROIDISM
     Route: 048
     Dates: start: 201205
  5. FUROSEMIDE. [Concomitant]
     Active Substance: FUROSEMIDE
     Indication: DRUG THERAPY
     Route: 048
     Dates: start: 201205
  6. BYDUREON [Suspect]
     Active Substance: EXENATIDE
     Indication: TYPE 2 DIABETES MELLITUS
     Dosage: ONCE A WEEK
     Route: 058
     Dates: start: 20120919
  7. ATORVASTATIN [Concomitant]
     Active Substance: ATORVASTATIN
     Indication: DYSLIPIDAEMIA
     Route: 048
     Dates: start: 2009
  8. CALCITRIOL. [Concomitant]
     Active Substance: CALCITRIOL
     Indication: CHRONIC KIDNEY DISEASE
     Route: 048
     Dates: start: 20140308
  9. INSULIN [Concomitant]
     Active Substance: INSULIN NOS
     Indication: DIABETES MELLITUS
     Route: 058
     Dates: start: 20140104
  10. ESOMEPRAZOLE [Concomitant]
     Active Substance: ESOMEPRAZOLE
     Indication: PROPHYLAXIS
     Route: 048
     Dates: start: 20140308
  11. ASA [Concomitant]
     Active Substance: ASPIRIN
     Indication: ANTIPLATELET THERAPY
     Dates: start: 2010

REACTIONS (1)
  - Papillary thyroid cancer [Recovered/Resolved]

NARRATIVE: CASE EVENT DATE: 20131210
